FAERS Safety Report 7425535-9 (Version None)
Quarter: 2011Q2

REPORT INFORMATION
  Report Type: 
  Country: None (occurrence: None)
  Receive Date: 20110412
  Receipt Date: 20110331
  Transmission Date: 20111010
  Serious: Yes (Hospitalization, Other)
  Sender: FDA-Public Use
  Company Number: 1000019697

PATIENT
  Age: 82 Year
  Sex: Male

DRUGS (9)
  1. DOXAZOSIN (DOXAZOSIN)(4 MILLIGRAM, TABLETS)(DOXAZOSIN) [Concomitant]
  2. TROMBYL (ACETYLSALICYLIC ACID)(160 MILLIGRAM, TABLETS)(ACETYLSALICYLIC [Concomitant]
  3. ESCITALOPRAM OXALATE [Suspect]
     Dosage: 30 MG (30 MG,  1 IN 1 D), ORAL
     Route: 048
     Dates: start: 20100214, end: 20100705
  4. ARICEPT [Suspect]
     Dosage: 5 MG (5 MG,  1 IN 1 U),ORAL
     Route: 048
     Dates: start: 20090331, end: 20100520
  5. SIMVASTATIN (SIMVASTATIN) (40 MILLIGRAM, TABLETS)(SIMVASTATIN) [Concomitant]
  6. ALLOPURINOL (ALLOPURINOL) (100 MILLIGRAM,   TABLETS) (ALLOPURINOL) [Concomitant]
  7. FURIX (FUROSEMIDE)(40 MILLIGRAM, TABLETS)(FUROSEMIDE) [Concomitant]
  8. ALVEDON (PARACETAMOL) (500 MILLIGRAM, TABLETS) (PARACETAMOL) [Concomitant]
  9. NITROMEX (GLYCERYL TRINITRATE)(0.25 MILLIGRAM, TABLETS)(GLYCERYL TRINI [Concomitant]

REACTIONS (2)
  - OVERDOSE [None]
  - CONVULSION [None]
